FAERS Safety Report 6591160-5 (Version None)
Quarter: 2010Q1

REPORT INFORMATION
  Report Type: 
  Country: None (occurrence: None)
  Receive Date: 20100219
  Receipt Date: 20100209
  Transmission Date: 20100710
  Serious: Yes (Hospitalization)
  Sender: FDA-Public Use
  Company Number: ZA-WYE-H13537510

PATIENT
  Age: 71 Year
  Sex: Male

DRUGS (12)
  1. AMIODARONE [Suspect]
     Indication: DRUG USE FOR UNKNOWN INDICATION
     Route: 065
  2. DORMONOCT [Suspect]
     Indication: BIPOLAR DISORDER
     Route: 065
  3. DORMONOCT [Suspect]
     Indication: AGGRESSION
  4. GEODON [Suspect]
     Indication: BIPOLAR DISORDER
     Route: 048
  5. GEODON [Suspect]
     Indication: AGGRESSION
     Route: 048
  6. CAMCOLIT [Suspect]
     Indication: DRUG USE FOR UNKNOWN INDICATION
     Dosage: DOSE UNKNOWN
     Route: 065
  7. SIMVASTATIN [Suspect]
     Route: 065
  8. ARICEPT [Suspect]
     Route: 065
  9. URIZONE [Suspect]
     Indication: DRUG USE FOR UNKNOWN INDICATION
     Route: 065
  10. EPILIM [Suspect]
     Indication: BIPOLAR DISORDER
     Route: 048
  11. EPILIM [Suspect]
     Indication: AGGRESSION
  12. ECOTRIN [Suspect]
     Indication: DRUG USE FOR UNKNOWN INDICATION
     Route: 065

REACTIONS (1)
  - ATRIAL FIBRILLATION [None]
